FAERS Safety Report 9617957 (Version 1)
Quarter: 2013Q4

REPORT INFORMATION
  Report Type: Spontaneous
  Country: BR (occurrence: BR)
  Receive Date: 20131011
  Receipt Date: 20131011
  Transmission Date: 20140711
  Serious: Yes (Other)
  Sender: FDA-Public Use
  Company Number: BR-BIOMARINAP-BR-2013-101599

PATIENT
  Sex: Male

DRUGS (1)
  1. NAGLAZYME [Suspect]
     Indication: MUCOPOLYSACCHARIDOSIS VI
     Dosage: 60 MG, QW
     Route: 041
     Dates: start: 20120509

REACTIONS (5)
  - Hypoaesthesia [Unknown]
  - Dyspnoea [Unknown]
  - Back pain [Unknown]
  - Neck pain [Unknown]
  - Gait disturbance [Unknown]
